FAERS Safety Report 5817846-5 (Version None)
Quarter: 2008Q3

REPORT INFORMATION
  Report Type: 
  Country: None (occurrence: None)
  Receive Date: 20080722
  Receipt Date: 20070801
  Transmission Date: 20090109
  Serious: Yes (Hospitalization)
  Sender: FDA-Public Use
  Company Number: PR-BAYER-PR-2007-028572

PATIENT
  Age: 60 Year
  Sex: Female

DRUGS (1)
  1. MAGNEVIST [Suspect]
     Indication: NUCLEAR MAGNETIC RESONANCE IMAGING
     Dosage: UNIT DOSE: 11 ML
     Route: 042
     Dates: start: 20070726, end: 20070726

REACTIONS (6)
  - BURNING SENSATION MUCOSAL [None]
  - EAR DISCOMFORT [None]
  - ERYTHEMA [None]
  - OEDEMA [None]
  - ORAL DISCOMFORT [None]
  - PARAESTHESIA [None]
